FAERS Safety Report 6762803-8 (Version None)
Quarter: 2010Q2

REPORT INFORMATION
  Report Type: 
  Country: None (occurrence: None)
  Receive Date: 20100609
  Receipt Date: 20100528
  Transmission Date: 20101027
  Serious: Yes (Other)
  Sender: FDA-Public Use
  Company Number: US-SANOFI-AVENTIS-2010SA026864

PATIENT
  Age: 62 Year
  Sex: Female
  Weight: 96.16 kg

DRUGS (9)
  1. MULTAQ [Suspect]
     Indication: ATRIAL FIBRILLATION
     Route: 048
     Dates: start: 20100421
  2. COUMADIN [Concomitant]
     Indication: ATRIAL FIBRILLATION
     Dosage: 5MG DAILY WITH 7.5MG ON SATURDAY AND SUNDAY
     Dates: start: 20100216
  3. COUMADIN [Concomitant]
     Dosage: 5 MG EVERY SAT TO THURS, 7.5 MG EVERY FRI
  4. DIGOXIN [Concomitant]
     Dates: start: 20100216, end: 20100421
  5. METOPROLOL TARTRATE [Concomitant]
     Indication: HYPERTENSION
     Dates: start: 20100216
  6. ASPIRIN [Concomitant]
     Indication: PROPHYLAXIS
     Dates: start: 20060801
  7. DIOVANE [Concomitant]
     Indication: HYPERTENSION
     Dates: start: 20050601
  8. COSOPT [Concomitant]
     Indication: GLAUCOMA
     Dates: start: 20050601
  9. LUMIGAN [Concomitant]
     Indication: GLAUCOMA

REACTIONS (3)
  - ATRIAL FIBRILLATION [None]
  - HEART RATE DECREASED [None]
  - THERAPEUTIC RESPONSE UNEXPECTED [None]
